FAERS Safety Report 8461982-4 (Version None)
Quarter: 2012Q2

REPORT INFORMATION
  Report Type: 
  Country: None (occurrence: None)
  Receive Date: 20120625
  Receipt Date: 20120619
  Transmission Date: 20120825
  Serious: Yes (Life-Threatening)
  Sender: FDA-Public Use
  Company Number: DK-JNJFOC-20120611460

PATIENT
  Sex: Male
  Weight: 85 kg

DRUGS (5)
  1. LYRICA [Concomitant]
     Indication: SCHIZOTYPAL PERSONALITY DISORDER
     Route: 065
     Dates: start: 20110721
  2. INVEGA [Suspect]
     Indication: SCHIZOTYPAL PERSONALITY DISORDER
     Route: 048
     Dates: start: 20120608, end: 20120610
  3. AMISULPRID [Concomitant]
     Indication: SCHIZOTYPAL PERSONALITY DISORDER
     Route: 065
     Dates: start: 20110626
  4. SEROQUEL [Concomitant]
     Indication: RESTLESSNESS
     Route: 065
     Dates: start: 20111026
  5. PROPRANOLOL [Concomitant]
     Indication: PALPITATIONS
     Route: 065
     Dates: start: 20110926

REACTIONS (5)
  - HYPOAESTHESIA [None]
  - SUFFOCATION FEELING [None]
  - PARAESTHESIA [None]
  - HYPERSENSITIVITY [None]
  - HEADACHE [None]
